FAERS Safety Report 20076989 (Version 1)
Quarter: 2021Q4

REPORT INFORMATION
  Report Type: Spontaneous
  Country: US (occurrence: None)
  Receive Date: 20211115
  Receipt Date: 20211115
  Transmission Date: 20220303
  Serious: No
  Sender: FDA-Public Use
  Company Number: None

PATIENT
  Age: 80 Year
  Sex: Male

DRUGS (1)
  1. CAPECITABINE [Suspect]
     Active Substance: CAPECITABINE
     Route: 048
     Dates: start: 202109, end: 202110

REACTIONS (5)
  - Nausea [None]
  - Vomiting [None]
  - Dehydration [None]
  - Hernia [None]
  - Oesophageal obstruction [None]

NARRATIVE: CASE EVENT DATE: 20211012
